FAERS Safety Report 24197360 (Version 5)
Quarter: 2024Q3

REPORT INFORMATION
  Report Type: Spontaneous
  Country: US (occurrence: US)
  Receive Date: 20240810
  Receipt Date: 20240925
  Transmission Date: 20241016
  Serious: No
  Sender: GLAXOSMITHKLINE
  Company Number: US-GSK-US2024095741

PATIENT
  Sex: Female

DRUGS (1)
  1. NUCALA [Suspect]
     Active Substance: MEPOLIZUMAB
     Indication: Product used for unknown indication
     Dosage: UNK
     Dates: start: 202407

REACTIONS (8)
  - Injection site pain [Not Recovered/Not Resolved]
  - Pain [Unknown]
  - Stress [Not Recovered/Not Resolved]
  - Symptom recurrence [Unknown]
  - Headache [Unknown]
  - Gastroenteritis viral [Unknown]
  - Illness [Unknown]
  - Product dose omission issue [Unknown]
